FAERS Safety Report 5236378-9 (Version None)
Quarter: 2007Q1

REPORT INFORMATION
  Report Type: 
  Country: None (occurrence: None)
  Receive Date: 20061208
  Receipt Date: 20060214
  Transmission Date: 20070707
  Serious: Yes (Other)
  Sender: FDA-Public Use
  Company Number: 2006UW00430

PATIENT
  Age: 69 Year
  Sex: Female

DRUGS (1)
  1. CRESTOR [Suspect]
     Dosage: 10 MG PO
     Route: 048
     Dates: start: 20041201, end: 20051101

REACTIONS (2)
  - HEADACHE [None]
  - PAIN [None]
